FAERS Safety Report 9438352 (Version 1)
Quarter: 2013Q3

REPORT INFORMATION
  Report Type: Spontaneous
  Country: US (occurrence: US)
  Receive Date: 20130802
  Receipt Date: 20130802
  Transmission Date: 20140515
  Serious: No
  Sender: FDA-Public Use
  Company Number: US-BRISTOL-MYERS SQUIBB COMPANY-17032202

PATIENT
  Age: 59 Year
  Sex: Female

DRUGS (4)
  1. WARFARIN SODIUM [Suspect]
     Indication: PULMONARY EMBOLISM
     Dosage: THERAPY STARTED WITH 5 MG ONCE/DAY AND INCREASED TO 7.5 MG/ONCE/DAY ON 24AUG2012.
     Route: 048
     Dates: end: 20120904
  2. WARFARIN SODIUM [Suspect]
     Indication: DEEP VEIN THROMBOSIS
     Dosage: THERAPY STARTED WITH 5 MG ONCE/DAY AND INCREASED TO 7.5 MG/ONCE/DAY ON 24AUG2012.
     Route: 048
     Dates: end: 20120904
  3. NORTRIPTYLINE [Concomitant]
     Dosage: 1DF:10MG TABS
  4. CLONAZEPAM [Concomitant]

REACTIONS (2)
  - Vertigo [Recovered/Resolved]
  - Dizziness [Recovered/Resolved]
